FAERS Safety Report 5056083-1 (Version None)
Quarter: 2006Q3

REPORT INFORMATION
  Report Type: 
  Country: None (occurrence: None)
  Receive Date: 20060717
  Receipt Date: 20060706
  Transmission Date: 20061208
  Serious: No
  Sender: FDA-Public Use
  Company Number: CERZ-11270

PATIENT
  Age: 15 Year
  Sex: Female

DRUGS (1)
  1. CEREZYME [Suspect]
     Indication: GAUCHER'S DISEASE
     Dosage: 60 U/KG QWKS IV
     Route: 042
     Dates: start: 20051101

REACTIONS (1)
  - OSTEONECROSIS [None]
